FAERS Safety Report 6679703-4 (Version None)
Quarter: 2010Q2

REPORT INFORMATION
  Report Type: 
  Country: None (occurrence: None)
  Receive Date: 20100413
  Receipt Date: 20100405
  Transmission Date: 20101027
  Serious: Yes (Other)
  Sender: FDA-Public Use
  Company Number: US-RB-006412-10

PATIENT
  Age: 24 Year
  Sex: Male

DRUGS (2)
  1. SUBOXONE [Suspect]
     Route: 060
     Dates: start: 20080101, end: 20080101
  2. PHENERGAN [Suspect]
     Indication: DRUG USE FOR UNKNOWN INDICATION
     Dosage: DOSING DETAILS UNKNOWN
     Route: 048
     Dates: start: 20080101, end: 20080101

REACTIONS (4)
  - DECREASED APPETITE [None]
  - GUN SHOT WOUND [None]
  - HALLUCINATION [None]
  - INSOMNIA [None]
